FAERS Safety Report 11386608 (Version 1)
Quarter: 2015Q3

REPORT INFORMATION
  Report Type: Spontaneous
  Country: US (occurrence: US)
  Receive Date: 20150811
  Receipt Date: 20150811
  Transmission Date: 20151125
  Serious: No
  Sender: FDA-Public Use
  Company Number: US-ELI_LILLY_AND_COMPANY-US201211007597

PATIENT
  Sex: Female

DRUGS (1)
  1. AXIRON [Suspect]
     Active Substance: TESTOSTERONE
     Indication: BLOOD TESTOSTERONE DECREASED
     Dosage: 60 MG - 2 PUMPS (HUSBAND^S DOSE), QD
     Route: 061
     Dates: start: 201208

REACTIONS (2)
  - Virilism [Unknown]
  - Blood testosterone increased [Unknown]
